FAERS Safety Report 7774003-3 (Version None)
Quarter: 2011Q3

REPORT INFORMATION
  Report Type: 
  Country: None (occurrence: None)
  Receive Date: 20110920
  Receipt Date: 20110909
  Transmission Date: 20111222
  Serious: Yes (Other)
  Sender: FDA-Public Use
  Company Number: B0748170A

PATIENT

DRUGS (1)
  1. TOPOTECAN HYDROCHLORIDE [Suspect]
     Indication: INTRAOCULAR RETINOBLASTOMA
     Dosage: .7 MG, SINGLE DOSE, RIGHT EYE

REACTIONS (5)
  - WHITE BLOOD CELL COUNT DECREASED [None]
  - HAEMATOTOXICITY [None]
  - NEUTROPHIL COUNT DECREASED [None]
  - HAEMOGLOBIN DECREASED [None]
  - OCULAR TOXICITY [None]
